FAERS Safety Report 8145424-4 (Version None)
Quarter: 2012Q1

REPORT INFORMATION
  Report Type: 
  Country: None (occurrence: None)
  Receive Date: 20120217
  Receipt Date: 20120208
  Transmission Date: 20120608
  Serious: Yes (Hospitalization, Other)
  Sender: FDA-Public Use
  Company Number: US-ABBOTT-12P-163-0891256-00

PATIENT
  Sex: Male

DRUGS (19)
  1. PEPCID [Concomitant]
     Indication: GASTRIC DISORDER
  2. PREDNISONE [Concomitant]
     Indication: PRODUCT USED FOR UNKNOWN INDICATION
  3. HUMIRA [Suspect]
     Indication: RHEUMATOID ARTHRITIS
     Dates: start: 20111026, end: 20111201
  4. NAMENDA [Concomitant]
     Indication: MEMORY IMPAIRMENT
     Dosage: QPM
  5. METOPROLOL TARTRATE [Concomitant]
     Indication: HYPERTENSION
  6. HYDROCODONE [Concomitant]
     Indication: PAIN
     Dosage: 7.5/500 MG
  7. VITAMIN D [Concomitant]
     Indication: PRODUCT USED FOR UNKNOWN INDICATION
  8. ASPIRIN [Concomitant]
     Indication: PRODUCT USED FOR UNKNOWN INDICATION
  9. AMIODARONE HCL [Concomitant]
     Indication: BLOOD PRESSURE ABNORMAL
  10. PEPCID [Concomitant]
  11. DOCUSATE SODIUM [Concomitant]
     Indication: PRODUCT USED FOR UNKNOWN INDICATION
  12. DONEPEZIL HCL [Concomitant]
     Indication: INSOMNIA
     Dosage: AT BEDTIME
  13. ZOLOFT [Concomitant]
     Indication: PRODUCT USED FOR UNKNOWN INDICATION
     Dosage: DAILY
  14. ACETAMINOPHEN [Concomitant]
     Indication: PAIN
     Dosage: 1 - 2 Q 5-6 HOURS PRN
  15. AMLODIPINE [Concomitant]
     Indication: BLOOD PRESSURE ABNORMAL
  16. NORVASC [Concomitant]
     Indication: PRODUCT USED FOR UNKNOWN INDICATION
  17. ABILIFY [Concomitant]
     Indication: MOOD ALTERED
  18. ARICEPT [Concomitant]
     Indication: PRODUCT USED FOR UNKNOWN INDICATION
     Dosage: AT BEDTIME
  19. FERROUS SULFATE TAB [Concomitant]
     Indication: PRODUCT USED FOR UNKNOWN INDICATION

REACTIONS (11)
  - PHARYNGEAL ULCERATION [None]
  - HEART RATE INCREASED [None]
  - MENISCUS LESION [None]
  - DIVERTICULITIS [None]
  - MOBILITY DECREASED [None]
  - ARTHRALGIA [None]
  - LARGE INTESTINAL ULCER [None]
  - GASTROOESOPHAGEAL REFLUX DISEASE [None]
  - HAEMATOCHEZIA [None]
  - FOOT OPERATION [None]
  - ARTHROPATHY [None]
